FAERS Safety Report 15172671 (Version 1)
Quarter: 2018Q3

REPORT INFORMATION
  Report Type: Spontaneous
  Country: US (occurrence: US)
  Receive Date: 20180720
  Receipt Date: 20180720
  Transmission Date: 20181010
  Serious: No
  Sender: FDA-Public Use
  Company Number: US-SEPTODONT-201704291

PATIENT
  Sex: Female

DRUGS (2)
  1. SEPTOCAINE AND EPINEPHRINE [Suspect]
     Active Substance: ARTICAINE HYDROCHLORIDE\EPINEPHRINE BITARTRATE
     Indication: LOCAL ANAESTHESIA
     Route: 004
  2. ORAVERSE [Suspect]
     Active Substance: PHENTOLAMINE MESYLATE
     Indication: ANAESTHESIA REVERSAL
     Route: 004

REACTIONS (2)
  - Hypoaesthesia [Unknown]
  - Facial pain [Unknown]
